FAERS Safety Report 26072504 (Version 1)
Quarter: 2025Q4

REPORT INFORMATION
  Report Type: Report from Study
  Country: US (occurrence: US)
  Receive Date: 20251120
  Receipt Date: 20251120
  Transmission Date: 20260117
  Serious: Yes (Hospitalization, Other)
  Sender: ALEXION PHARMACEUTICALS
  Company Number: US-ASTRAZENECA-202511NAM012333US

PATIENT
  Age: 57 Year
  Sex: Female

DRUGS (1)
  1. STRENSIQ [Suspect]
     Active Substance: ASFOTASE ALFA
     Indication: Phosphorus metabolism disorder
     Dosage: 2 MILLIGRAM/KILOGRAM, TIW
     Route: 065

REACTIONS (19)
  - COVID-19 pneumonia [Unknown]
  - Dyspnoea [Unknown]
  - Secretion discharge [Unknown]
  - Rheumatoid arthritis [Unknown]
  - Suture related complication [Unknown]
  - Bacterial test positive [Unknown]
  - Musculoskeletal discomfort [Unknown]
  - Muscular weakness [Unknown]
  - Asthma [Unknown]
  - Arthralgia [Unknown]
  - Infection [Unknown]
  - Joint swelling [Unknown]
  - Complication associated with device [Unknown]
  - Burning sensation [Unknown]
  - Blood chloride increased [Unknown]
  - Haematocrit increased [Unknown]
  - Blood glucose increased [Unknown]
  - Neutrophil count increased [Unknown]
  - Insomnia [Unknown]
